FAERS Safety Report 15903879 (Version 4)
Quarter: 2019Q1

REPORT INFORMATION
  Report Type: Spontaneous
  Country: CO (occurrence: CO)
  Receive Date: 20190204
  Receipt Date: 20190228
  Transmission Date: 20190417
  Serious: Yes (Death, Other)
  Sender: FDA-Public Use
  Company Number: CO-AUROBINDO-AUR-APL-2019-006296

PATIENT

DRUGS (39)
  1. VECURONIUM BROMIDE. [Concomitant]
     Active Substance: VECURONIUM BROMIDE
     Indication: PRODUCT USED FOR UNKNOWN INDICATION
     Dosage: 10 MG /1H
     Route: 042
     Dates: start: 20190114, end: 20190119
  2. NOREPINEPHRINE. [Concomitant]
     Active Substance: NOREPINEPHRINE
     Indication: PRODUCT USED FOR UNKNOWN INDICATION
     Dosage: 4 MG/1 H
     Route: 042
     Dates: start: 20190118, end: 20190120
  3. FUROSEMIDE. [Concomitant]
     Active Substance: FUROSEMIDE
     Dosage: 20 MG/24 H
     Route: 042
     Dates: start: 20190118, end: 20190118
  4. SODIUM CHLORIDE. [Concomitant]
     Active Substance: SODIUM CHLORIDE
     Indication: PRODUCT USED FOR UNKNOWN INDICATION
     Dosage: 1 BAG/12 H
     Route: 042
     Dates: start: 20181230, end: 20190120
  5. ALBUMIN [Concomitant]
     Active Substance: ALBUMIN HUMAN
     Indication: PRODUCT USED FOR UNKNOWN INDICATION
     Dosage: 10 G/ 1 H
     Route: 042
     Dates: start: 20190120, end: 20190120
  6. ALBUMIN [Concomitant]
     Active Substance: ALBUMIN HUMAN
     Dosage: 10 G/ 1 H
     Route: 042
     Dates: start: 20190117, end: 20190117
  7. ADRENALINE [Concomitant]
     Active Substance: EPINEPHRINE
     Indication: PRODUCT USED FOR UNKNOWN INDICATION
     Dosage: 1 MG / 1 H
     Route: 042
     Dates: start: 20190120, end: 20190120
  8. ACETAMINOPHEN. [Concomitant]
     Active Substance: ACETAMINOPHEN
     Indication: PRODUCT USED FOR UNKNOWN INDICATION
     Dosage: 2 ML /6 H
     Route: 048
     Dates: start: 20190111, end: 20190120
  9. METHYLPREDNISOLONE. [Concomitant]
     Active Substance: METHYLPREDNISOLONE
     Indication: PRODUCT USED FOR UNKNOWN INDICATION
     Dosage: 4 MG/6 H
     Route: 042
     Dates: start: 20181226, end: 20190106
  10. METHYLPREDNISOLONE. [Concomitant]
     Active Substance: METHYLPREDNISOLONE
     Dosage: 7 MILLIGRAM
     Route: 042
     Dates: start: 20181226, end: 20181226
  11. LACTATED RINGERS SOLUTION [Concomitant]
     Active Substance: CALCIUM CHLORIDE\POTASSIUM CHLORIDE\SODIUM CHLORIDE\SODIUM LACTATE
     Indication: PRODUCT USED FOR UNKNOWN INDICATION
     Dosage: 1 BAG
     Route: 042
     Dates: start: 20190118, end: 20190118
  12. HYDROCORTISONE. [Concomitant]
     Active Substance: HYDROCORTISONE
     Indication: PRODUCT USED FOR UNKNOWN INDICATION
     Dosage: 4 MG/8 H
     Route: 042
     Dates: start: 20190120, end: 20190120
  13. GENTAMICIN. [Concomitant]
     Active Substance: GENTAMICIN
     Indication: PRODUCT USED FOR UNKNOWN INDICATION
     Dosage: 20 MG/24 H
     Route: 042
     Dates: start: 20190116, end: 20190119
  14. DEXAMETHASONE. [Concomitant]
     Active Substance: DEXAMETHASONE
     Indication: PRODUCT USED FOR UNKNOWN INDICATION
     Dosage: 0,5 MG
     Route: 042
     Dates: start: 20190110, end: 20190110
  15. AMPHOTERICIN B. [Concomitant]
     Active Substance: AMPHOTERICIN B
     Indication: PRODUCT USED FOR UNKNOWN INDICATION
     Dosage: 4 MG/24 H
     Route: 042
     Dates: start: 20190117, end: 20190119
  16. DAD BABY GRIPE [Concomitant]
     Dosage: 10% 250 ML, BAG
     Route: 042
     Dates: start: 20190116, end: 20190116
  17. POTASSIUM CHLORIDE. [Concomitant]
     Active Substance: POTASSIUM CHLORIDE
     Dosage: 5 ML /24 H
     Route: 042
     Dates: start: 20190118, end: 20190120
  18. CIPROFLOXACIN. [Concomitant]
     Active Substance: CIPROFLOXACIN
     Indication: PRODUCT USED FOR UNKNOWN INDICATION
     Dosage: 40 MG/12 H
     Route: 042
     Dates: start: 20190120, end: 20190120
  19. FERROUS SULFATE. [Concomitant]
     Active Substance: FERROUS SULFATE
     Indication: PRODUCT USED FOR UNKNOWN INDICATION
     Dosage: 4 DROPS /6H
     Route: 048
     Dates: start: 20190108, end: 20190120
  20. VANCOMYCIN [Concomitant]
     Active Substance: VANCOMYCIN
     Indication: PRODUCT USED FOR UNKNOWN INDICATION
     Dosage: 60 MG/ 6H
     Route: 042
     Dates: start: 20190117, end: 20190120
  21. OMEPRAZOLE. [Concomitant]
     Active Substance: OMEPRAZOLE
     Indication: PRODUCT USED FOR UNKNOWN INDICATION
     Dosage: 4 MG/24 H
     Route: 042
     Dates: start: 20181226, end: 20190106
  22. DAD BABY GRIPE [Concomitant]
     Indication: PRODUCT USED FOR UNKNOWN INDICATION
     Dosage: 5% 100 ML, BAG/24 H
     Route: 042
     Dates: start: 20190117, end: 20190118
  23. DEXAMETHASONE. [Concomitant]
     Active Substance: DEXAMETHASONE
     Indication: PRODUCT USED FOR UNKNOWN INDICATION
     Dosage: 1 MG/12 H
     Route: 042
     Dates: start: 20190113, end: 20190113
  24. DEXAMETHASONE. [Concomitant]
     Active Substance: DEXAMETHASONE
     Dosage: 0.8 MG/12H
     Route: 042
     Dates: start: 20190110, end: 20190112
  25. VASOPRESSIN. [Concomitant]
     Active Substance: VASOPRESSIN
     Indication: PRODUCT USED FOR UNKNOWN INDICATION
     Dosage: 20 UI/1H
     Route: 042
     Dates: start: 20190120, end: 20190120
  26. MORPHINE [Concomitant]
     Active Substance: MORPHINE
     Indication: PRODUCT USED FOR UNKNOWN INDICATION
     Dosage: 10 MG/1 H
     Route: 042
     Dates: start: 20190110, end: 20190119
  27. ATROPINE. [Concomitant]
     Active Substance: ATROPINE
     Indication: PRODUCT USED FOR UNKNOWN INDICATION
     Dosage: 1 MG/1 H
     Route: 042
     Dates: start: 20190120, end: 20190120
  28. AMPICILLIN;SULBACTAM [Concomitant]
     Active Substance: AMPICILLIN SODIUM\SULBACTAM SODIUM
     Indication: PRODUCT USED FOR UNKNOWN INDICATION
     Dosage: 400 MG/6H
     Route: 042
     Dates: start: 20181226, end: 20190106
  29. VANCOMYCIN [Concomitant]
     Active Substance: VANCOMYCIN
     Dosage: 57 MG/ 8H
     Route: 042
     Dates: start: 20190112, end: 20190117
  30. DIPYRONE [Concomitant]
     Active Substance: DIPYRONE
     Indication: PRODUCT USED FOR UNKNOWN INDICATION
     Dosage: 0,115 G/6 H
     Route: 042
     Dates: start: 20190110, end: 20190118
  31. MILRINONE [Concomitant]
     Active Substance: MILRINONE
     Indication: PRODUCT USED FOR UNKNOWN INDICATION
     Dosage: 10 MILLIGRAM
     Route: 042
     Dates: start: 20190120, end: 20190120
  32. MIDAZOLAM [Concomitant]
     Active Substance: MIDAZOLAM HYDROCHLORIDE
     Indication: PRODUCT USED FOR UNKNOWN INDICATION
     Dosage: 5 MG/1 H
     Route: 042
     Dates: start: 20190111, end: 20190116
  33. FUROSEMIDE. [Concomitant]
     Active Substance: FUROSEMIDE
     Indication: PRODUCT USED FOR UNKNOWN INDICATION
     Dosage: 20 MG/1 H
     Route: 042
     Dates: start: 20190120, end: 20190120
  34. POTASSIUM CHLORIDE. [Concomitant]
     Active Substance: POTASSIUM CHLORIDE
     Indication: PRODUCT USED FOR UNKNOWN INDICATION
     Dosage: 5 ML /12 H
     Route: 042
     Dates: start: 20181226, end: 20190111
  35. CEFALOTIN [Concomitant]
     Active Substance: CEPHALOTHIN
     Indication: PRODUCT USED FOR UNKNOWN INDICATION
     Dosage: 180MG/12H
     Route: 042
     Dates: start: 20190110, end: 20190111
  36. ATROPINE. [Concomitant]
     Active Substance: ATROPINE
     Dosage: 1 MILLIGRAM
     Route: 042
     Dates: start: 20190110, end: 20190110
  37. AMPICILLIN;SULBACTAM [Concomitant]
     Active Substance: AMPICILLIN SODIUM\SULBACTAM SODIUM
     Dosage: 160 MG/8H
     Route: 042
     Dates: start: 20181218, end: 20181226
  38. MEROGRAM [Suspect]
     Active Substance: MEROPENEM
     Indication: PNEUMONIA BACTERIAL
     Dosage: 150 MILLIGRAM, 3 TIMES A DAY (150 MILLIGRAM/8 H)
     Route: 042
     Dates: start: 20190112, end: 20190119
  39. DOBUTAMINE [Concomitant]
     Active Substance: DOBUTAMINE\DOBUTAMINE HYDROCHLORIDE
     Indication: PRODUCT USED FOR UNKNOWN INDICATION
     Dosage: 250 MG/1 H
     Route: 042
     Dates: start: 20190120, end: 20190120

REACTIONS (1)
  - Treatment failure [Fatal]

NARRATIVE: CASE EVENT DATE: 20190112
